FAERS Safety Report 5322031-X (Version None)
Quarter: 2007Q2

REPORT INFORMATION
  Report Type: 
  Country: None (occurrence: None)
  Receive Date: 20070508
  Receipt Date: 20070508
  Transmission Date: 20071010
  Serious: No
  Sender: FDA-Public Use
  Company Number: None

PATIENT
  Age: 38 Year
  Sex: Male
  Weight: 81.6475 kg

DRUGS (1)
  1. CHLOR-TRIMETON [Suspect]
     Indication: HYPERSENSITIVITY
     Dosage: 1 PILL  ONCE  PO
     Route: 048
     Dates: start: 20070505, end: 20070505

REACTIONS (6)
  - DIZZINESS [None]
  - FATIGUE [None]
  - FEELING ABNORMAL [None]
  - RESTLESSNESS [None]
  - VISION BLURRED [None]
  - VISUAL DISTURBANCE [None]
